FAERS Safety Report 9999321 (Version 2)
Quarter: 2014Q1

REPORT INFORMATION
  Report Type: Spontaneous
  Country: FR (occurrence: FR)
  Receive Date: 20140312
  Receipt Date: 20140324
  Transmission Date: 20141002
  Serious: Yes (Hospitalization, Other)
  Sender: FDA-Public Use
  Company Number: FR-MYLANLABS-2014S1005011

PATIENT
  Age: 35 Year
  Sex: Female

DRUGS (8)
  1. EPINEPHRINE [Suspect]
     Indication: ANAESTHESIA
     Dosage: X3
     Route: 008
  2. EPINEPHRINE [Suspect]
     Indication: ANAESTHESIA
     Route: 042
  3. MARCAIN /00044301/ [Suspect]
     Indication: ANAESTHESIA
     Dosage: 20ML OF A SOLUTION COMPRISED OF 90MG OF 0.5%
  4. EFFORTIL [Suspect]
     Dosage: 10MG DILUTED IN 500ML OF RINGER^S LACTATE
  5. ALDOMET [Concomitant]
  6. PLASMION [Concomitant]
     Dosage: GELATIN, MAGNESIUM CHLORIDE ANHYDROUS,POTASSIUM CHLORIDE, SODIUM CHLORIDE, SODIUM LACTATE
  7. FENTANYL [Concomitant]
  8. RINGER-LACTATE [Concomitant]
     Dosage: CALCIUM CHLORIDE DIHYDRATE, POTASSIUM CHLORIDE, SODIUM CHLORIDE, SODIUM LACTATE

REACTIONS (2)
  - Anaphylactic shock [Unknown]
  - Drug intolerance [Unknown]
